FAERS Safety Report 24526601 (Version 1)
Quarter: 2024Q4

REPORT INFORMATION
  Report Type: Report from Study
  Country: JP (occurrence: JP)
  Receive Date: 20241021
  Receipt Date: 20241021
  Transmission Date: 20250115
  Serious: No
  Sender: ROCHE
  Company Number: JP-CHUGAI-2023008234

PATIENT
  Age: 1 Year
  Sex: Male
  Weight: 7.25 kg

DRUGS (2)
  1. ZELBORAF [Suspect]
     Active Substance: VEMURAFENIB
     Indication: Langerhans^ cell histiocytosis
     Route: 048
     Dates: start: 20220623, end: 20220629
  2. ZELBORAF [Suspect]
     Active Substance: VEMURAFENIB
     Dosage: UNK
     Route: 048
     Dates: start: 20220630, end: 20220818

REACTIONS (2)
  - Off label use [Unknown]
  - No adverse event [Unknown]
